FAERS Safety Report 19496855 (Version 1)
Quarter: 2021Q3

REPORT INFORMATION
  Report Type: Spontaneous
  Country: US (occurrence: US)
  Receive Date: 20210704
  Receipt Date: 20210704
  Transmission Date: 20211014
  Serious: No
  Sender: FDA-Public Use
  Company Number: None

PATIENT
  Sex: Female

DRUGS (11)
  1. LOSARTAN 25 MG TAB [Concomitant]
     Active Substance: LOSARTAN POTASSIUM
  2. LEVOTHYROXINE 25 MG TAB [Concomitant]
  3. LEVETIRACETAM 750 MG TAB [Concomitant]
  4. TRELEGY ELLIPTA [Concomitant]
     Active Substance: FLUTICASONE FUROATE\UMECLIDINIUM BROMIDE\VILANTEROL TRIFENATATE
  5. FOLIC ACID 1 MG TAB [Concomitant]
  6. VITAMIN B12 [Concomitant]
     Active Substance: CYANOCOBALAMIN
  7. PROPRANOLOL 10 MG TAB [Concomitant]
  8. ALBUTEROL HFA [Concomitant]
     Active Substance: ALBUTEROL SULFATE
  9. KISQALI [Suspect]
     Active Substance: RIBOCICLIB
     Indication: BREAST CANCER
     Route: 048
  10. DIAZEPAM 5 MG TAB [Concomitant]
  11. MAGNESIUM OXIDE 400 MG TAB [Concomitant]

REACTIONS (1)
  - Disease progression [None]
